FAERS Safety Report 12528436 (Version 7)
Quarter: 2016Q4

REPORT INFORMATION
  Report Type: Spontaneous
  Country: JP (occurrence: JP)
  Receive Date: 20160705
  Receipt Date: 20161004
  Transmission Date: 20170207
  Serious: Yes (Hospitalization, Other)
  Sender: FDA-Public Use
  Company Number: JP-TAKEDA-2016MPI006059

PATIENT
  Age: 75 Year
  Sex: Male
  Weight: 43.1 kg

DRUGS (27)
  1. DARATUMUMAB [Suspect]
     Active Substance: DARATUMUMAB
     Indication: PLASMA CELL MYELOMA
     Dosage: UNK
     Route: 042
     Dates: start: 20160526
  2. NEUTROGIN [Concomitant]
     Active Substance: LENOGRASTIM
     Indication: NEUTROPHIL COUNT DECREASED
     Dosage: UNK, QD
     Route: 058
     Dates: start: 20160613, end: 20160614
  3. PRIMPERAN [Concomitant]
     Active Substance: METOCLOPRAMIDE HYDROCHLORIDE
     Indication: NAUSEA
     Dosage: 5 MG, UNK
     Route: 048
     Dates: start: 20160531, end: 20160606
  4. PRIMPERAN [Concomitant]
     Active Substance: METOCLOPRAMIDE HYDROCHLORIDE
     Dosage: 5 MG, TID
     Route: 048
     Dates: start: 20160607, end: 20160622
  5. ZOVIRAX [Concomitant]
     Active Substance: ACYCLOVIR
     Indication: PROPHYLAXIS
     Dosage: 200 MG, QD
     Route: 048
     Dates: start: 20160514, end: 20160622
  6. TRIMETHOPRIM. [Concomitant]
     Active Substance: TRIMETHOPRIM
     Indication: INFECTION PROPHYLAXIS
     Dosage: 80 MG, UNK
     Route: 048
     Dates: start: 20160516, end: 20160620
  7. XYLOCAINE [Concomitant]
     Active Substance: LIDOCAINE HYDROCHLORIDE
     Indication: CONSTIPATION
     Dosage: 5 ML, QD
     Route: 061
     Dates: start: 20160524, end: 20160524
  8. PREDNISOLONE. [Suspect]
     Active Substance: PREDNISOLONE
     Indication: PLASMA CELL MYELOMA
     Dosage: 60 MG, UNK
     Route: 048
     Dates: start: 20160526, end: 20160627
  9. MELPHALAN [Suspect]
     Active Substance: MELPHALAN
     Indication: PLASMA CELL MYELOMA
     Dosage: UNK
     Route: 048
     Dates: start: 20160526, end: 20160627
  10. CORONAL                            /00802602/ [Concomitant]
     Indication: THORACIC VERTEBRAL FRACTURE
     Dosage: 400 MG, UNK
     Route: 048
     Dates: end: 20160622
  11. LANSOPRAZOLE. [Concomitant]
     Active Substance: LANSOPRAZOLE
     Indication: GASTRITIS PROPHYLAXIS
     Dosage: 15 MG, QD
     Route: 048
     Dates: start: 20160514, end: 20160622
  12. SODIUM CHLORIDE. [Concomitant]
     Active Substance: SODIUM CHLORIDE
     Dosage: 1000 ML, QD
     Route: 042
     Dates: start: 20160527, end: 20160527
  13. SODIUM GUALENATE [Concomitant]
     Active Substance: SODIUM GUALENATE
     Indication: INFECTION PROPHYLAXIS
     Dosage: 5 ML, TID
     Route: 061
     Dates: start: 20160605, end: 20160704
  14. WYPAX [Concomitant]
     Active Substance: LORAZEPAM
     Indication: NAUSEA
     Dosage: 1 MG, QD
     Route: 048
     Dates: start: 20160607
  15. SULFAMETHOXAZOLE [Concomitant]
     Active Substance: SULFAMETHOXAZOLE
     Indication: INFECTION PROPHYLAXIS
     Dosage: 400 MG, UNK
     Route: 048
     Dates: start: 20160516, end: 20160620
  16. SODIUM CHLORIDE. [Concomitant]
     Active Substance: SODIUM CHLORIDE
     Dosage: 500 ML, UNK
     Route: 042
     Dates: start: 20160610, end: 20160613
  17. BFLUID [Concomitant]
     Active Substance: AMINO ACIDS\DEXTROSE\ELECTROLYTES NOS\VITAMINS
     Indication: DECREASED APPETITE
     Dosage: 500 ML, QD
     Route: 042
     Dates: start: 20160604, end: 20160609
  18. CEFEPIME [Concomitant]
     Active Substance: CEFEPIME HYDROCHLORIDE
     Indication: PYREXIA
     Dosage: 1 G, QD
     Route: 042
     Dates: start: 20160620, end: 20160622
  19. VELCADE [Suspect]
     Active Substance: BORTEZOMIB
     Indication: PLASMA CELL MYELOMA
     Dosage: 1.8 MG, UNK
     Route: 058
     Dates: start: 20160526, end: 20160627
  20. SODIUM CHLORIDE. [Concomitant]
     Active Substance: SODIUM CHLORIDE
     Dosage: 500 ML, QD
     Route: 042
     Dates: start: 20160528, end: 20160604
  21. MAGMITT [Concomitant]
     Active Substance: MAGNESIUM OXIDE
     Indication: CONSTIPATION
     Dosage: 330 MG, TID
     Route: 048
     Dates: end: 20160614
  22. AMOBAN [Concomitant]
     Active Substance: ZOPICLONE
     Indication: INSOMNIA
     Dosage: 10 MG, QD
     Route: 048
     Dates: start: 20160524, end: 20160614
  23. KENEI ENEMA [Concomitant]
     Indication: CONSTIPATION
     Dosage: 60 ML, QD
     Route: 054
     Dates: start: 20160513, end: 20160513
  24. SODIUM CHLORIDE. [Concomitant]
     Active Substance: SODIUM CHLORIDE
     Indication: DEHYDRATION
     Dosage: 500 ML, QD
     Route: 042
     Dates: start: 20160525, end: 20160525
  25. ZOLEDRONIC ACID [Concomitant]
     Active Substance: ZOLEDRONIC ACID
     Indication: BONE LESION
     Dosage: 4 MG, UNK
     Route: 042
     Dates: start: 20160525, end: 20160711
  26. ANAPROX [Concomitant]
     Active Substance: NAPROXEN SODIUM
     Indication: URINARY TRACT INFECTION
     Dosage: 20 G, QD
     Route: 048
     Dates: start: 20160524, end: 20160530
  27. CALONAL [Concomitant]
     Active Substance: ACETAMINOPHEN
     Indication: PYREXIA
     Dosage: 600 MG, UNK
     Route: 048
     Dates: start: 20160531, end: 20160622

REACTIONS (5)
  - Relapsing fever [Recovering/Resolving]
  - Multiple organ dysfunction syndrome [Recovered/Resolved]
  - Neutrophil count decreased [Unknown]
  - Decreased appetite [Unknown]
  - Nausea [Unknown]

NARRATIVE: CASE EVENT DATE: 20160531
